FAERS Safety Report 7939162-8 (Version None)
Quarter: 2011Q4

REPORT INFORMATION
  Report Type: 
  Country: None (occurrence: None)
  Receive Date: 20111124
  Receipt Date: 20111123
  Transmission Date: 20120403
  Serious: Yes (Other)
  Sender: FDA-Public Use
  Company Number: AT-ROCHE-1014009

PATIENT
  Sex: Female
  Weight: 66 kg

DRUGS (2)
  1. VOLTAREN [Concomitant]
     Route: 065
  2. ACTEMRA [Suspect]
     Indication: RHEUMATOID ARTHRITIS
     Route: 042
     Dates: start: 20090201

REACTIONS (1)
  - EOSINOPHILIA [None]
